FAERS Safety Report 5684737-2 (Version None)
Quarter: 2008Q1

REPORT INFORMATION
  Report Type: 
  Country: None (occurrence: None)
  Receive Date: 20080328
  Receipt Date: 19880404
  Transmission Date: 20080703
  Serious: Yes (Death, Other)
  Sender: FDA-Public Use
  Company Number: FR-ROCHE-9704

PATIENT
  Age: 40 Year
  Sex: Male

DRUGS (3)
  1. TICLID [Suspect]
     Route: 048
     Dates: end: 19870101
  2. SULFACETAMIDE [Suspect]
     Indication: DRUG USE FOR UNKNOWN INDICATION
     Dosage: REPORTED AS SULFAMIDE
     Route: 065
  3. ACENOCOUMAROL [Concomitant]

REACTIONS (3)
  - AGRANULOCYTOSIS [None]
  - DEATH [None]
  - SEPSIS [None]
